FAERS Safety Report 6709178-8 (Version None)
Quarter: 2010Q2

REPORT INFORMATION
  Report Type: 
  Country: None (occurrence: None)
  Receive Date: 20100504
  Receipt Date: 20100421
  Transmission Date: 20101027
  Serious: Yes (Other)
  Sender: FDA-Public Use
  Company Number: JP-BAYER-200812273BYL

PATIENT
  Age: 68 Year
  Sex: Male
  Weight: 55 kg

DRUGS (20)
  1. NEXAVAR [Suspect]
     Indication: RENAL CELL CARCINOMA
     Dosage: AS USED: 800 MG  UNIT DOSE: 200 MG
     Route: 048
     Dates: start: 20080612, end: 20080617
  2. NEXAVAR [Suspect]
     Dosage: AS USED: 400 MG  UNIT DOSE: 200 MG
     Route: 048
     Dates: start: 20080618, end: 20080618
  3. NEXAVAR [Suspect]
     Dosage: TOTAL DAILY DOSE: 200 MG  UNIT DOSE: 200 MG
     Route: 048
     Dates: start: 20081011, end: 20090721
  4. NEXAVAR [Suspect]
     Dosage: AS USED: 200 MG  UNIT DOSE: 200 MG
     Route: 048
     Dates: start: 20080912, end: 20081010
  5. THYRADIN S [Concomitant]
     Indication: HYPOTHYROIDISM
     Route: 048
     Dates: start: 20080627, end: 20080706
  6. THYRADIN S [Concomitant]
     Route: 048
     Dates: start: 20080711, end: 20080717
  7. THYRADIN S [Concomitant]
     Route: 048
     Dates: start: 20081121, end: 20090714
  8. THYRADIN S [Concomitant]
     Route: 048
     Dates: start: 20090721, end: 20090824
  9. THYRADIN S [Concomitant]
     Dosage: TOTAL DAILY DOSE: 12.5 ?G
     Route: 048
     Dates: start: 20080612, end: 20080618
  10. THYRADIN S [Concomitant]
     Route: 048
     Dates: start: 20080926, end: 20081023
  11. SALOBEL [Concomitant]
     Route: 048
     Dates: start: 20080627, end: 20080706
  12. SALOBEL [Concomitant]
     Route: 048
     Dates: start: 20090721, end: 20090824
  13. SALOBEL [Concomitant]
     Route: 048
     Dates: start: 20081121, end: 20090714
  14. SALOBEL [Concomitant]
     Route: 048
     Dates: start: 20080926, end: 20081023
  15. SALOBEL [Concomitant]
     Dosage: TOTAL DAILY DOSE: 100 MG
     Route: 048
     Dates: start: 20080307, end: 20080618
  16. SALOBEL [Concomitant]
     Route: 048
     Dates: start: 20080711, end: 20080717
  17. CEFDINIR [Concomitant]
     Indication: INFECTION PROPHYLAXIS
     Route: 048
     Dates: start: 20080925, end: 20080927
  18. WHITE PETROLATUM [Concomitant]
     Indication: PROPHYLAXIS
     Route: 061
     Dates: start: 20080918
  19. RINDERON-VG [Concomitant]
     Indication: PROPHYLAXIS
     Route: 061
     Dates: start: 20080918
  20. LOPEMIN [Concomitant]
     Indication: PROPHYLAXIS AGAINST DIARRHOEA
     Route: 048
     Dates: start: 20081121, end: 20090116

REACTIONS (13)
  - ALOPECIA [None]
  - BLOOD THYROID STIMULATING HORMONE INCREASED [None]
  - DIARRHOEA [None]
  - DRUG ERUPTION [None]
  - HYPERKALAEMIA [None]
  - HYPERTENSION [None]
  - HYPOTHYROIDISM [None]
  - NEPHROTIC SYNDROME [None]
  - OEDEMA PERIPHERAL [None]
  - PALMAR-PLANTAR ERYTHRODYSAESTHESIA SYNDROME [None]
  - PLATELET COUNT DECREASED [None]
  - PYREXIA [None]
  - WHITE BLOOD CELL COUNT DECREASED [None]
